FAERS Safety Report 6178562-6 (Version None)
Quarter: 2009Q2

REPORT INFORMATION
  Report Type: 
  Country: None (occurrence: None)
  Receive Date: 20090504
  Receipt Date: 20080729
  Transmission Date: 20091009
  Serious: No
  Sender: FDA-Public Use
  Company Number: US-ALEXION-A200800180

PATIENT

DRUGS (29)
  1. SOLIRIS [Suspect]
     Indication: PAROXYSMAL NOCTURNAL HAEMOGLOBINURIA
     Dosage: 600 MG, SINGLE
     Route: 042
     Dates: start: 20070911, end: 20070911
  2. SOLIRIS [Suspect]
     Dosage: 600 MG, SINGLE
     Route: 042
     Dates: start: 20070926, end: 20070926
  3. SOLIRIS [Suspect]
     Dosage: 600 MG, SINGLE
     Route: 042
     Dates: start: 20071003, end: 20071003
  4. SOLIRIS [Suspect]
     Dosage: 600 MG, SINGLE
     Route: 042
     Dates: start: 20071010, end: 20071010
  5. SOLIRIS [Suspect]
     Dosage: 900 MG, SINGLE
     Route: 042
     Dates: start: 20071114, end: 20071114
  6. SOLIRIS [Suspect]
     Dosage: 900 MG, SINGLE
     Route: 042
     Dates: start: 20071128, end: 20071128
  7. SOLIRIS [Suspect]
     Dosage: 900 MG, SINGLE
     Route: 042
     Dates: start: 20071212, end: 20071212
  8. SOLIRIS [Suspect]
     Dosage: 900 MG, SINGLE
     Route: 042
     Dates: start: 20071226, end: 20071226
  9. SOLIRIS [Suspect]
     Dosage: 900 MG, SINGLE
     Route: 042
     Dates: start: 20080109, end: 20080109
  10. SOLIRIS [Suspect]
     Dosage: 900 MG, SINGLE
     Route: 042
     Dates: start: 20080124, end: 20080124
  11. SOLIRIS [Suspect]
     Dosage: 900 MG, SINGLE
     Route: 042
     Dates: start: 20080207, end: 20080207
  12. SOLIRIS [Suspect]
     Dosage: 900 MG, SINGLE
     Route: 042
     Dates: start: 20080221, end: 20080221
  13. SOLIRIS [Suspect]
     Dosage: 900 MG, SINGLE
     Route: 042
     Dates: start: 20080306, end: 20080306
  14. SOLIRIS [Suspect]
     Dosage: 900 MG, SINGLE
     Route: 042
     Dates: start: 20080320, end: 20080320
  15. SOLIRIS [Suspect]
     Dosage: 900 MG, SINGLE
     Route: 042
     Dates: start: 20080403, end: 20080403
  16. SOLIRIS [Suspect]
     Dosage: 900 MG, SINGLE
     Route: 042
     Dates: start: 20080417, end: 20080417
  17. SOLIRIS [Suspect]
     Dosage: 900 MG, SINGLE
     Route: 042
     Dates: start: 20080501, end: 20080501
  18. SOLIRIS [Suspect]
     Dosage: 900 MG, SINGLE
     Route: 042
     Dates: start: 20080515, end: 20080515
  19. SOLIRIS [Suspect]
     Dosage: 900 MG, SINGLE
     Route: 042
     Dates: start: 20080529, end: 20080529
  20. SOLIRIS [Suspect]
     Dosage: 900 MG, SINGLE
     Route: 042
     Dates: start: 20080612, end: 20080612
  21. CALCIUM [Concomitant]
     Dosage: UNK, QD
     Route: 048
  22. EFFEXOR [Concomitant]
     Dosage: UNK, QD
     Route: 048
  23. VITAMIN B6 [Concomitant]
     Dosage: UNK, QD
     Route: 048
  24. MULTIVITAMIN /00831701/ [Concomitant]
     Dosage: UNK, QD
     Route: 048
  25. IRON [Concomitant]
     Dosage: UNK, QD
     Route: 048
  26. FOLIC ACID [Concomitant]
     Dosage: UNK, QD
     Route: 048
  27. PREDNISONE [Concomitant]
     Dosage: 10 MG, QD
     Route: 048
  28. ATG                                /00575401/ [Concomitant]
     Indication: MYELODYSPLASTIC SYNDROME
     Dates: start: 20080926
  29. CYCLOSPORINE [Concomitant]
     Indication: MYELODYSPLASTIC SYNDROME
     Dosage: 200 MG, QD
     Dates: start: 20080923, end: 20081010

REACTIONS (6)
  - ARTHRALGIA [None]
  - FEELING ABNORMAL [None]
  - HAEMOGLOBINURIA [None]
  - HEADACHE [None]
  - INAPPROPRIATE SCHEDULE OF DRUG ADMINISTRATION [None]
  - MYALGIA [None]
